FAERS Safety Report 7020107-2 (Version None)
Quarter: 2010Q3

REPORT INFORMATION
  Report Type: 
  Country: None (occurrence: None)
  Receive Date: 20100929
  Receipt Date: 20100924
  Transmission Date: 20110219
  Serious: Yes (Death, Hospitalization, Other)
  Sender: FDA-Public Use
  Company Number: US-CELGENEUS-163-21880-10092381

PATIENT
  Sex: Male

DRUGS (2)
  1. REVLIMID [Suspect]
     Route: 048
     Dates: start: 20100825, end: 20100901
  2. REVLIMID [Suspect]
     Route: 048
     Dates: start: 20100902, end: 20100904

REACTIONS (4)
  - ACUTE MYELOID LEUKAEMIA [None]
  - DEATH [None]
  - THROMBOCYTOPENIA [None]
  - URETERIC OBSTRUCTION [None]
